FAERS Safety Report 7094261-0 (Version None)
Quarter: 2010Q4

REPORT INFORMATION
  Report Type: 
  Country: None (occurrence: None)
  Receive Date: 20101110
  Receipt Date: 20101102
  Transmission Date: 20110411
  Serious: Yes (Hospitalization)
  Sender: FDA-Public Use
  Company Number: IT-GENZYME-FABR-1001455

PATIENT

DRUGS (4)
  1. FABRAZYME [Suspect]
     Indication: FABRY'S DISEASE
     Dosage: 0.5 MG/KG, UNK
     Route: 042
     Dates: start: 20100101
  2. FABRAZYME [Suspect]
     Dosage: 0.3 MG/KG, UNK
     Route: 042
     Dates: start: 20090101, end: 20100101
  3. FABRAZYME [Suspect]
     Dosage: 1.0 MG/KG, UNK
     Route: 042
     Dates: start: 20030331, end: 20090101
  4. PROGRAF [Concomitant]
     Indication: RENAL TRANSPLANT
     Dosage: UNK

REACTIONS (3)
  - HYPERTENSION [None]
  - HYPERTENSIVE CRISIS [None]
  - RENAL DISORDER [None]
